FAERS Safety Report 4481612-6 (Version None)
Quarter: 2004Q3

REPORT INFORMATION
  Report Type: 
  Country: None (occurrence: None)
  Receive Date: 20040921
  Receipt Date: 20040710
  Transmission Date: 20050211
  Serious: Yes (Hospitalization)
  Sender: FDA-Public Use
  Company Number: 163-20785-04070263(0)

PATIENT
  Age: 54 Year
  Sex: Female
  Weight: 52.9 kg

DRUGS (2)
  1. THALOMID [Suspect]
     Indication: NON-SMALL CELL LUNG CANCER
     Dosage: 400 MG, DAILY, ORAL
     Route: 048
     Dates: start: 20040421, end: 20040706
  2. CPT-11 (IRINOTECAN) (UNKNOWN) [Suspect]
     Indication: NON-SMALL CELL LUNG CANCER
     Dosage: 350 MG/M2, EVERY 21 DAYS, INTRAVENOUS
     Route: 042
     Dates: start: 20040421, end: 20040630

REACTIONS (3)
  - DEHYDRATION [None]
  - DIARRHOEA [None]
  - VOMITING [None]
